FAERS Safety Report 15917952 (Version 1)
Quarter: 2019Q1

REPORT INFORMATION
  Report Type: Report from Study
  Country: US (occurrence: US)
  Receive Date: 20190205
  Receipt Date: 20190205
  Transmission Date: 20190417
  Serious: Yes (Death, Hospitalization)
  Sender: FDA-Public Use
  Company Number: US-SA-2019SA025999

PATIENT
  Age: 62 Year
  Sex: Female

DRUGS (1)
  1. INSULIN GLARGINE [Suspect]
     Active Substance: INSULIN GLARGINE
     Indication: TYPE 2 DIABETES MELLITUS
     Dosage: 65 U, HS
     Route: 058
     Dates: start: 201805

REACTIONS (2)
  - Myocardial infarction [Fatal]
  - Chest pain [Recovered/Resolved]

NARRATIVE: CASE EVENT DATE: 201901
